FAERS Safety Report 8323428-6 (Version None)
Quarter: 2012Q2

REPORT INFORMATION
  Report Type: 
  Country: None (occurrence: None)
  Receive Date: 20120430
  Receipt Date: 20120328
  Transmission Date: 20120825
  Serious: Yes (Other)
  Sender: FDA-Public Use
  Company Number: PHEH2012US008791

PATIENT
  Sex: Female

DRUGS (4)
  1. DIOVAN [Suspect]
  2. DOXYCYCLINE HYCLATE [Concomitant]
     Dosage: 50 MG, UNK
  3. LISINOPRIL [Suspect]
  4. HYDROCHLOROTHIAZIDE [Concomitant]
     Dosage: 25 MG, UNK

REACTIONS (4)
  - DIZZINESS [None]
  - DEPRESSION [None]
  - DIARRHOEA [None]
  - COUGH [None]
